FAERS Safety Report 16765076 (Version 1)
Quarter: 2019Q3

REPORT INFORMATION
  Report Type: Spontaneous
  Country: US (occurrence: US)
  Receive Date: 20190903
  Receipt Date: 20190903
  Transmission Date: 20191005
  Serious: No
  Sender: FDA-Public Use
  Company Number: US-BRISTOL-MYERS SQUIBB COMPANY-BMS-2019-084752

PATIENT
  Sex: Female

DRUGS (1)
  1. ELIQUIS [Suspect]
     Active Substance: APIXABAN
     Indication: THROMBOSIS
     Dosage: TWICE A DAY
     Route: 065
     Dates: start: 201908

REACTIONS (1)
  - Product dose omission [Unknown]

NARRATIVE: CASE EVENT DATE: 20190827
